FAERS Safety Report 8061938-X (Version None)
Quarter: 2012Q1

REPORT INFORMATION
  Report Type: 
  Country: None (occurrence: None)
  Receive Date: 20120117
  Receipt Date: 20120110
  Transmission Date: 20120608
  Serious: Yes (Other)
  Sender: FDA-Public Use
  Company Number: TPA2010A05683

PATIENT
  Age: 74 Year
  Sex: Male
  Weight: 86.1834 kg

DRUGS (9)
  1. CRESTOR [Concomitant]
  2. NETOPROLOL [Concomitant]
  3. ACTOS [Suspect]
     Indication: DIABETES MELLITUS
     Dosage: 30 MG, 1 IN 1 D, PER ORAL; 1 IN 1 D, PER ORAL
     Route: 048
     Dates: start: 20100924, end: 20100926
  4. ACTOS [Suspect]
     Indication: DIABETES MELLITUS
     Dosage: 30 MG, 1 IN 1 D, PER ORAL; 1 IN 1 D, PER ORAL
     Route: 048
     Dates: start: 20100927, end: 20100930
  5. METFORMIN HCL [Concomitant]
  6. ENALAPRIL [Concomitant]
  7. GLIPIZIDE [Concomitant]
  8. ASPIRIN [Concomitant]
  9. ZANTAC [Concomitant]

REACTIONS (8)
  - CHEST PAIN [None]
  - MUSCLE TIGHTNESS [None]
  - BLOOD GLUCOSE INCREASED [None]
  - DRUG DOSE OMISSION [None]
  - SUPRAVENTRICULAR TACHYCARDIA [None]
  - FATIGUE [None]
  - NAUSEA [None]
  - DYSPNOEA [None]
